FAERS Safety Report 5500114-9 (Version None)
Quarter: 2007Q4

REPORT INFORMATION
  Report Type: 
  Country: None (occurrence: None)
  Receive Date: 20071024
  Receipt Date: 20071012
  Transmission Date: 20080405
  Serious: Yes (Hospitalization, Other)
  Sender: FDA-Public Use
  Company Number: GXKR2007DE08823

PATIENT
  Age: 32 Year
  Sex: Male

DRUGS (3)
  1. CLOZAPINE [Suspect]
     Indication: SCHIZOPHRENIA
     Dosage: 550 MG, QD,; 200 MG, QD,; 225 MG, QD,
  2. VALPROIC ACID [Suspect]
     Indication: OBSESSIVE-COMPULSIVE DISORDER
     Dosage: 1300 MG, QD,; 1500 MG, QD,
  3. FLUPENTIXOL (FLUPENTIXOL) [Concomitant]

REACTIONS (4)
  - AFFECTIVE DISORDER [None]
  - OBSESSIVE-COMPULSIVE DISORDER [None]
  - PSYCHOMOTOR HYPERACTIVITY [None]
  - WEIGHT INCREASED [None]
